FAERS Safety Report 5049923-3 (Version None)
Quarter: 2006Q3

REPORT INFORMATION
  Report Type: 
  Country: None (occurrence: None)
  Receive Date: 20060707
  Receipt Date: 20060629
  Transmission Date: 20061208
  Serious: Yes (Hospitalization)
  Sender: FDA-Public Use
  Company Number: 29464

PATIENT
  Age: 56 Year
  Sex: Female

DRUGS (5)
  1. ALDARA [Suspect]
     Indication: ANOGENITAL WARTS
     Dosage: SEE IMAGE
     Route: 061
     Dates: start: 20060404, end: 20060408
  2. ALDARA [Suspect]
     Indication: ANOGENITAL WARTS
     Dosage: SEE IMAGE
     Route: 061
     Dates: start: 20060531, end: 20060606
  3. COQ-10 [Suspect]
  4. LUTEINE [Suspect]
  5. VITAMINS [Concomitant]

REACTIONS (13)
  - ANXIETY [None]
  - APPLICATION SITE DRYNESS [None]
  - APPLICATION SITE PAIN [None]
  - APPLICATION SITE PRURITUS [None]
  - APPLICATION SITE REACTION [None]
  - FATIGUE [None]
  - FEELING COLD [None]
  - MENTAL DISORDER [None]
  - MYALGIA [None]
  - PANIC ATTACK [None]
  - SUICIDAL IDEATION [None]
  - TREMOR [None]
  - VAGINAL DISCHARGE [None]
